FAERS Safety Report 8157564-4 (Version None)
Quarter: 2012Q1

REPORT INFORMATION
  Report Type: 
  Country: None (occurrence: None)
  Receive Date: 20120222
  Receipt Date: 20110829
  Transmission Date: 20120608
  Serious: No
  Sender: FDA-Public Use
  Company Number: US-ASTRAZENECA-2011SE52045

PATIENT

DRUGS (10)
  1. CIPROFLOXACIN HCL [Concomitant]
     Route: 065
  2. PRAMIPEXOLE DIHYCHLLORIDE [Concomitant]
     Route: 065
  3. METFORMIN HCL [Concomitant]
     Route: 065
  4. LEVEMIR [Concomitant]
     Route: 065
  5. ALENDRONATE SODIUM [Concomitant]
     Route: 065
  6. ATENOLOL [Suspect]
     Route: 065
  7. ACETAMINOPHEN AND HYDROCODONE BITARTRATE [Concomitant]
     Route: 065
  8. SEROQUEL XR [Suspect]
     Route: 048
  9. OMEPRAZOLE [Concomitant]
     Route: 048
  10. CRESTOR [Concomitant]
     Route: 048

REACTIONS (9)
  - OSTEOPOROSIS [None]
  - CYSTITIS [None]
  - RESTLESS LEGS SYNDROME [None]
  - BLOOD CHOLESTEROL INCREASED [None]
  - DEPRESSION [None]
  - RHEUMATOID ARTHRITIS [None]
  - DIABETES MELLITUS [None]
  - FIBROMYALGIA [None]
  - GASTROOESOPHAGEAL REFLUX DISEASE [None]
